FAERS Safety Report 9635989 (Version 1)
Quarter: 2013Q4

REPORT INFORMATION
  Report Type: Spontaneous
  Country: US (occurrence: US)
  Receive Date: 20131021
  Receipt Date: 20131021
  Transmission Date: 20140711
  Serious: No
  Sender: FDA-Public Use
  Company Number: US-PURDUE-USA-2013-0104099

PATIENT
  Age: 45 Year
  Sex: Male

DRUGS (2)
  1. BUTRANS [Suspect]
     Indication: PRODUCT USED FOR UNKNOWN INDICATION
     Dosage: 10 MCG/HR, WEEKLY
     Route: 062
     Dates: start: 2011
  2. BACLOFEN [Concomitant]
     Indication: PAIN
     Dosage: 10 MG, PRN
     Route: 048

REACTIONS (1)
  - Drug screen positive [Not Recovered/Not Resolved]
